FAERS Safety Report 7000982-8 (Version None)
Quarter: 2010Q3

REPORT INFORMATION
  Report Type: 
  Country: None (occurrence: None)
  Receive Date: 20100920
  Receipt Date: 20091207
  Transmission Date: 20110219
  Serious: Yes (Other)
  Sender: FDA-Public Use
  Company Number: US-ASTRAZENECA-2009SE31255

PATIENT
  Age: 17 Year
  Sex: Female

DRUGS (10)
  1. SEROQUEL [Suspect]
     Route: 048
  2. INSULIN HUMAN [Concomitant]
  3. DESONIDE [Concomitant]
  4. INSULIN GLARGINE [Concomitant]
  5. METOCLOPRAMIDE [Concomitant]
  6. ORTHO TRI-CYCLEN [Concomitant]
  7. METFORMIN HYDROCHLORIDE [Concomitant]
  8. ORTHO EVRA [Concomitant]
  9. NOVOLOG MIX 70/30 [Concomitant]
  10. PRENATAL VITAMIN FERROUS SULFATE [Concomitant]

REACTIONS (2)
  - DIABETES MELLITUS [None]
  - DIABETIC KETOACIDOSIS [None]
